FAERS Safety Report 10661997 (Version 1)
Quarter: 2014Q4

REPORT INFORMATION
  Report Type: Spontaneous
  Country: US (occurrence: None)
  Receive Date: 20141216
  Receipt Date: 20141216
  Transmission Date: 20150529
  Serious: Yes (Other)
  Sender: FDA-Public Use
  Company Number: NSR_01718_2014

PATIENT
  Age: 45 Year
  Sex: Female

DRUGS (1)
  1. BACLOFEN. [Suspect]
     Active Substance: BACLOFEN
     Indication: MULTIPLE SCLEROSIS
     Dosage: UP-TITRATED TO 50 MG DAILY OVER 1 WEEK, THEN WEANED OFF
     Route: 048

REACTIONS (2)
  - Depression suicidal [None]
  - Headache [None]
